FAERS Safety Report 7167339-0 (Version None)
Quarter: 2010Q4

REPORT INFORMATION
  Report Type: 
  Country: None (occurrence: None)
  Receive Date: 20101216
  Receipt Date: 20101210
  Transmission Date: 20110411
  Serious: Yes (Death)
  Sender: FDA-Public Use
  Company Number: PHHY2010US85119

PATIENT
  Age: 87 Year
  Sex: Female

DRUGS (1)
  1. TOBI [Suspect]
     Indication: LUNG INFECTION PSEUDOMONAL
     Dosage: 300 MG, BID
     Dates: start: 20091208

REACTIONS (1)
  - DEATH [None]
